FAERS Safety Report 10167810 (Version 2)
Quarter: 2014Q2

REPORT INFORMATION
  Report Type: Report from Study
  Country: US (occurrence: US)
  Receive Date: 20140512
  Receipt Date: 20140624
  Transmission Date: 20141212
  Serious: Yes (Other)
  Sender: FDA-Public Use
  Company Number: PHEH2014US009542

PATIENT
  Sex: Female

DRUGS (2)
  1. TEKTURNA [Suspect]
     Dosage: UNK UKN, UNK
     Route: 048
  2. TEKTURNA HCT [Suspect]
     Dosage: UNK UKN, UNK
     Route: 048

REACTIONS (11)
  - Diabetes mellitus [Unknown]
  - Arterial occlusive disease [Unknown]
  - Musculoskeletal discomfort [Unknown]
  - Limb discomfort [Unknown]
  - Movement disorder [Unknown]
  - Blood cholesterol increased [Unknown]
  - Dry eye [Unknown]
  - Dysgraphia [Unknown]
  - Herpes zoster [Unknown]
  - Dyspepsia [Unknown]
  - Hypertension [Unknown]
